FAERS Safety Report 14968726 (Version 1)
Quarter: 2018Q2

REPORT INFORMATION
  Report Type: Spontaneous
  Country: US (occurrence: US)
  Receive Date: 20180604
  Receipt Date: 20180604
  Transmission Date: 20180711
  Serious: No
  Sender: FDA-Public Use
  Company Number: US-SUNOVION-2018SUN002155

PATIENT

DRUGS (3)
  1. RISPERIDONE. [Concomitant]
     Active Substance: RISPERIDONE
  2. LATUDA [Suspect]
     Active Substance: LURASIDONE HYDROCHLORIDE
     Indication: DELUSION
     Dosage: 80 MG, QD
     Route: 048
     Dates: start: 20180518
  3. LATUDA [Suspect]
     Active Substance: LURASIDONE HYDROCHLORIDE
     Indication: PSYCHOTIC DISORDER
     Dosage: 40 MG, QD
     Route: 048

REACTIONS (8)
  - Logorrhoea [Unknown]
  - Restlessness [Unknown]
  - Restless legs syndrome [Unknown]
  - Agitation [Unknown]
  - Anxiety [Unknown]
  - Screaming [Unknown]
  - Drug ineffective for unapproved indication [Unknown]
  - Insomnia [Unknown]

NARRATIVE: CASE EVENT DATE: 20180518
